FAERS Safety Report 8460593-4 (Version None)
Quarter: 2012Q2

REPORT INFORMATION
  Report Type: 
  Country: None (occurrence: None)
  Receive Date: 20120622
  Receipt Date: 20120503
  Transmission Date: 20120825
  Serious: No
  Sender: FDA-Public Use
  Company Number: US-ASTRAZENECA-2012SE28756

PATIENT
  Sex: Male

DRUGS (3)
  1. BRILINTA [Suspect]
     Indication: ACUTE CORONARY SYNDROME
     Route: 048
  2. PLAVIX [Suspect]
     Route: 065
  3. MEDICATIONS [Concomitant]

REACTIONS (1)
  - TROPONIN INCREASED [None]
